FAERS Safety Report 20446339 (Version 3)
Quarter: 2022Q2

REPORT INFORMATION
  Report Type: Spontaneous
  Country: CA (occurrence: CA)
  Receive Date: 20220208
  Receipt Date: 20220621
  Transmission Date: 20220721
  Serious: Yes (Other)
  Sender: FDA-Public Use
  Company Number: CA-NAPPMUNDI-GBR-2022-0094761

PATIENT
  Age: 50 Year
  Sex: Female
  Weight: 130 kg

DRUGS (12)
  1. MORPHINE SULFATE [Suspect]
     Active Substance: MORPHINE SULFATE
     Indication: Product used for unknown indication
     Dosage: UNK
     Route: 065
  2. SANDOSTATIN [Suspect]
     Active Substance: OCTREOTIDE ACETATE
     Indication: Carcinoid tumour
     Dosage: 30 MG, 4 EVERY 1 WEEK
     Route: 030
  3. SANDOSTATIN [Suspect]
     Active Substance: OCTREOTIDE ACETATE
     Dosage: 120 MG, 1/WEEK
     Route: 030
  4. SANDOSTATIN [Suspect]
     Active Substance: OCTREOTIDE ACETATE
     Dosage: 120 MILLIGRAM, WEEKLY
     Route: 030
  5. SANDOSTATIN [Suspect]
     Active Substance: OCTREOTIDE ACETATE
     Dosage: 40 MILLIGRAM
     Route: 030
  6. SANDOSTATIN [Suspect]
     Active Substance: OCTREOTIDE ACETATE
     Dosage: 40 MILLIGRAM, 1 EVERY 3 WEEKS
     Route: 030
  7. SANDOSTATIN [Suspect]
     Active Substance: OCTREOTIDE ACETATE
     Dosage: 30 MILLIGRAM, MONTHLY
     Route: 030
  8. SOMATOSTATIN [Concomitant]
     Active Substance: SOMATOSTATIN
     Indication: Product used for unknown indication
     Dosage: UNK
     Route: 065
  9. SOMATOSTATIN [Concomitant]
     Active Substance: SOMATOSTATIN
     Dosage: UNK
     Route: 065
  10. TELMISARTAN [Concomitant]
     Active Substance: TELMISARTAN
     Indication: Product used for unknown indication
     Dosage: 80 MG, UNK
     Route: 048
  11. TELMISARTAN [Concomitant]
     Active Substance: TELMISARTAN
     Indication: Hypertension
     Dosage: UNK
     Route: 065
  12. TELMISARTAN [Concomitant]
     Active Substance: TELMISARTAN
     Dosage: 80 MG, UNK
     Route: 048

REACTIONS (53)
  - Hidradenitis [Unknown]
  - Acne [Unknown]
  - Administration site abscess [Unknown]
  - Administration site discharge [Unknown]
  - Administration site haemorrhage [Unknown]
  - Administration site induration [Unknown]
  - Administration site odour [Unknown]
  - Anxiety [Unknown]
  - Blood pressure increased [Unknown]
  - Breast cyst [Unknown]
  - Breast mass [Unknown]
  - Buttock injury [Unknown]
  - Carcinoid tumour [Unknown]
  - Cough [Unknown]
  - Dizziness [Unknown]
  - Dyspnoea [Unknown]
  - Fatigue [Unknown]
  - Feeling hot [Unknown]
  - Influenza [Unknown]
  - Injection site cyst [Unknown]
  - Injection site infection [Unknown]
  - Injection site pain [Unknown]
  - Injection site paraesthesia [Unknown]
  - Malignant neoplasm progression [Unknown]
  - Nasopharyngitis [Unknown]
  - Nausea [Unknown]
  - Pain [Unknown]
  - Productive cough [Unknown]
  - Pyrexia [Unknown]
  - Tumour marker increased [Unknown]
  - Weight decreased [Unknown]
  - Weight increased [Unknown]
  - Wound [Unknown]
  - Abdominal discomfort [Recovered/Resolved]
  - Blood pressure systolic increased [Recovered/Resolved]
  - Body temperature increased [Recovered/Resolved]
  - Chills [Recovered/Resolved]
  - Diabetes mellitus [Recovered/Resolved]
  - Diarrhoea [Recovered/Resolved]
  - Drug ineffective [Recovered/Resolved]
  - Drug intolerance [Recovered/Resolved]
  - Eschar [Recovered/Resolved]
  - Hot flush [Recovered/Resolved]
  - Inappropriate schedule of product administration [Recovered/Resolved]
  - Myalgia [Recovered/Resolved]
  - Night sweats [Recovered/Resolved]
  - Pruritus [Recovered/Resolved]
  - Rhinorrhoea [Recovered/Resolved]
  - Skin discolouration [Recovered/Resolved]
  - Stress [Recovered/Resolved]
  - Subcutaneous abscess [Recovered/Resolved]
  - Throat irritation [Recovered/Resolved]
  - Vomiting [Recovered/Resolved]
